FAERS Safety Report 13854484 (Version 2)
Quarter: 2017Q3

REPORT INFORMATION
  Report Type: Spontaneous
  Country: FR (occurrence: FR)
  Receive Date: 20170809
  Receipt Date: 20170907
  Transmission Date: 20171127
  Serious: Yes (Other)
  Sender: FDA-Public Use
  Company Number: FR-MERCK KGAA-2024418

PATIENT
  Age: 53 Year
  Sex: Female

DRUGS (1)
  1. NOVOTHYROX [Suspect]
     Active Substance: LEVOTHYROXINE SODIUM
     Indication: THYROID MASS
     Route: 048
     Dates: start: 201705

REACTIONS (4)
  - Dry skin [Unknown]
  - Pruritus [Unknown]
  - Rash [Unknown]
  - Product formulation issue [Unknown]

NARRATIVE: CASE EVENT DATE: 201705
